FAERS Safety Report 5955324-3 (Version None)
Quarter: 2008Q4

REPORT INFORMATION
  Report Type: 
  Country: None (occurrence: None)
  Receive Date: 20081117
  Receipt Date: 20081106
  Transmission Date: 20090506
  Serious: Yes (Other)
  Sender: FDA-Public Use
  Company Number: US-TYCO HEALTHCARE/MALLINCKRODT-T200801745

PATIENT

DRUGS (1)
  1. SODIUM IODIDE I 131 [Suspect]
     Indication: SCINTIGRAPHY
     Dosage: 23 MCI, SINGLE
     Dates: start: 19960401, end: 19960401

REACTIONS (1)
  - ACUTE MYELOID LEUKAEMIA [None]
